FAERS Safety Report 14205558 (Version 1)
Quarter: 2017Q4

REPORT INFORMATION
  Report Type: Spontaneous
  Country: US (occurrence: US)
  Receive Date: 20171120
  Receipt Date: 20171120
  Transmission Date: 20180321
  Serious: Yes (Other)
  Sender: FDA-Public Use
  Company Number: US-SA-2017SA209819

PATIENT
  Age: 52 Year
  Sex: Female

DRUGS (1)
  1. AMBIEN [Suspect]
     Active Substance: ZOLPIDEM TARTRATE
     Route: 048

REACTIONS (5)
  - Hallucination [Unknown]
  - Spinal column stenosis [Unknown]
  - Therapeutic response decreased [Unknown]
  - Insomnia [Unknown]
  - Fatigue [Unknown]
